FAERS Safety Report 15410484 (Version 7)
Quarter: 2021Q2

REPORT INFORMATION
  Report Type: Report from Study
  Country: None (occurrence: US)
  Receive Date: 20180921
  Receipt Date: 20210402
  Transmission Date: 20210716
  Serious: Yes (Hospitalization, Other)
  Sender: FDA-Public Use
  Company Number: US-ABBVIE-17K-163-2077081-00

PATIENT
  Age: 73 Year
  Sex: Female
  Weight: 66.74 kg

DRUGS (6)
  1. HUMIRA [Suspect]
     Active Substance: ADALIMUMAB
     Indication: RHEUMATOID ARTHRITIS
     Dosage: CITRATE FREE
     Route: 058
  2. HUMIRA [Suspect]
     Active Substance: ADALIMUMAB
     Indication: RHEUMATOID ARTHRITIS
     Route: 058
     Dates: start: 2014, end: 202102
  3. PFIZER?BIONTECH COVID?19 VACCINE [Concomitant]
     Active Substance: TOZINAMERAN
     Dosage: PFIZER
     Route: 030
     Dates: start: 20210324, end: 20210324
  4. HUMIRA [Suspect]
     Active Substance: ADALIMUMAB
     Indication: OSTEOARTHRITIS
     Route: 058
  5. PFIZER?BIONTECH COVID?19 VACCINE [Concomitant]
     Active Substance: TOZINAMERAN
     Indication: COVID-19 IMMUNISATION
     Dosage: PFIZER
     Route: 030
     Dates: start: 20210304, end: 20210304
  6. VANCOMYCIN [Concomitant]
     Active Substance: VANCOMYCIN
     Indication: PRODUCT USED FOR UNKNOWN INDICATION

REACTIONS (23)
  - Diabetes mellitus [Recovering/Resolving]
  - Renal impairment [Unknown]
  - Diarrhoea [Recovered/Resolved]
  - Colectomy [Unknown]
  - Emotional distress [Unknown]
  - Gastrointestinal bacterial infection [Unknown]
  - Memory impairment [Not Recovered/Not Resolved]
  - Fibromyalgia [Unknown]
  - Anaemia [Unknown]
  - Amnesia [Unknown]
  - Meteoropathy [Unknown]
  - Kyphosis [Unknown]
  - Insomnia [Unknown]
  - Drug ineffective [Recovered/Resolved]
  - Off label use [Unknown]
  - Arthrodesis [Unknown]
  - Fatigue [Unknown]
  - Hypertension [Recovering/Resolving]
  - Arthralgia [Recovering/Resolving]
  - Irritable bowel syndrome [Unknown]
  - Injection site pain [Recovered/Resolved]
  - Clostridium difficile infection [Recovered/Resolved]
  - Dementia [Recovering/Resolving]

NARRATIVE: CASE EVENT DATE: 202102
